FAERS Safety Report 5388957-6 (Version None)
Quarter: 2007Q3

REPORT INFORMATION
  Report Type: 
  Country: None (occurrence: None)
  Receive Date: 20070717
  Receipt Date: 20070706
  Transmission Date: 20080115
  Serious: Yes (Hospitalization)
  Sender: FDA-Public Use
  Company Number: PHBS2007BR11636

PATIENT
  Age: 18 Year
  Sex: Male

DRUGS (2)
  1. GLEEVEC [Suspect]
     Indication: CHRONIC MYELOID LEUKAEMIA
     Dosage: 400 MG, QD
     Route: 048
     Dates: start: 20070704, end: 20070706
  2. HYDROXYUREA [Concomitant]
     Dosage: 4 MG/D
     Route: 065

REACTIONS (1)
  - LOSS OF CONSCIOUSNESS [None]
